FAERS Safety Report 5009154-X (Version None)
Quarter: 2006Q2

REPORT INFORMATION
  Report Type: 
  Country: None (occurrence: None)
  Receive Date: 20060519
  Receipt Date: 20060509
  Transmission Date: 20061013
  Serious: No
  Sender: FDA-Public Use
  Company Number: 224430

PATIENT
  Age: 47 Year
  Sex: Female
  Weight: 59 kg

DRUGS (5)
  1. NUTROPIN AQ [Suspect]
     Indication: SURGERY
     Dosage: 0.7 MG SUBCUTANEOUS
     Route: 058
     Dates: start: 20041115
  2. EVISTA [Concomitant]
  3. LISINOPRIL [Concomitant]
  4. METAGLIP (GLIPIZIDE, METFORMIN) [Concomitant]
  5. TRICOR [Concomitant]

REACTIONS (2)
  - CONDITION AGGRAVATED [None]
  - DIABETES MELLITUS NON-INSULIN-DEPENDENT [None]
